APPROVED DRUG PRODUCT: ACETAMINOPHEN AND CODEINE PHOSPHATE
Active Ingredient: ACETAMINOPHEN; CODEINE PHOSPHATE
Strength: 300MG;15MG
Dosage Form/Route: TABLET;ORAL
Application: A040419 | Product #001 | TE Code: AA
Applicant: SPECGX LLC
Approved: May 31, 2001 | RLD: No | RS: Yes | Type: RX